FAERS Safety Report 24989888 (Version 2)
Quarter: 2025Q1

REPORT INFORMATION
  Report Type: Spontaneous
  Country: US (occurrence: US)
  Receive Date: 20250220
  Receipt Date: 20250307
  Transmission Date: 20250408
  Serious: Yes (Other)
  Sender: AUROBINDO
  Company Number: US-AUROBINDO-AUR-APL-2025-008567

PATIENT
  Age: 15 Year
  Sex: Male

DRUGS (7)
  1. PREDNISONE [Suspect]
     Active Substance: PREDNISONE
     Indication: Chronic inflammatory demyelinating polyradiculoneuropathy
     Route: 048
  2. Immunoglobulin [Concomitant]
     Indication: Guillain-Barre syndrome
     Dosage: 0.2 GRAM PER KILOGRAM, EVERY WEEK
     Route: 042
  3. Immunoglobulin [Concomitant]
     Dosage: 0.4 GRAM PER KILOGRAM, EVERY WEEK
     Route: 058
  4. Immunoglobulin [Concomitant]
  5. Immunoglobulin [Concomitant]
     Dosage: 1 GRAM PER KILOGRAM, EVERY WEEK (EVERY 3 WEEKS)
     Route: 042
  6. DEXAMETHASONE [Concomitant]
     Active Substance: DEXAMETHASONE
     Indication: Asthenia
     Route: 065
  7. DEXAMETHASONE [Concomitant]
     Active Substance: DEXAMETHASONE
     Route: 048

REACTIONS (1)
  - Drug ineffective [Unknown]
